FAERS Safety Report 21810144 (Version 1)
Quarter: 2023Q1

REPORT INFORMATION
  Report Type: Spontaneous
  Country: US (occurrence: US)
  Receive Date: 20230103
  Receipt Date: 20230103
  Transmission Date: 20230418
  Serious: No
  Sender: FDA-Public Use
  Company Number: US-SA-SAC20230102000481

PATIENT
  Sex: Male
  Weight: 115.6 kg

DRUGS (1)
  1. DUPIXENT [Suspect]
     Active Substance: DUPILUMAB
     Dosage: 300 MG, QOW
     Route: 058
     Dates: start: 2020

REACTIONS (6)
  - COVID-19 [Unknown]
  - Influenza like illness [Unknown]
  - Eczema [Unknown]
  - Fatigue [Unknown]
  - Feeling abnormal [Unknown]
  - Pain [Unknown]
